FAERS Safety Report 10418629 (Version 2)
Quarter: 2014Q3

REPORT INFORMATION
  Report Type: Spontaneous
  Country: FR (occurrence: FR)
  Receive Date: 20140829
  Receipt Date: 20140911
  Transmission Date: 20150326
  Serious: Yes (Hospitalization)
  Sender: FDA-Public Use
  Company Number: PHHY2014FR106250

PATIENT
  Age: 34 Year
  Sex: Male

DRUGS (4)
  1. AMOXICILLIN CLAVULANIC ACID SANDOZ [Suspect]
     Active Substance: AMOXICILLIN\CLAVULANIC ACID
     Indication: PROPHYLAXIS
     Route: 065
     Dates: start: 20140306, end: 20140307
  2. PROPOFOL LIPURO [Suspect]
     Active Substance: PROPOFOL
     Indication: SURGERY
     Route: 042
     Dates: start: 20140306, end: 20140306
  3. SUFENTA [Suspect]
     Active Substance: SUFENTANIL CITRATE
     Indication: SURGERY
     Route: 042
     Dates: start: 20140306, end: 20140306
  4. TRACRIUM [Suspect]
     Active Substance: ATRACURIUM BESYLATE
     Indication: SURGERY
     Route: 040
     Dates: start: 20140306, end: 20140306

REACTIONS (1)
  - Renal failure acute [Recovering/Resolving]

NARRATIVE: CASE EVENT DATE: 20140307
